FAERS Safety Report 9718595 (Version 1)
Quarter: 2013Q4

REPORT INFORMATION
  Report Type: Spontaneous
  Country: US (occurrence: None)
  Receive Date: 20131125
  Receipt Date: 20131125
  Transmission Date: 20140711
  Serious: Yes (Life-Threatening, Hospitalization)
  Sender: FDA-Public Use
  Company Number: 2013P1021149

PATIENT
  Age: 30 Year
  Sex: Female

DRUGS (1)
  1. DIPHENHYDRAMINE [Suspect]

REACTIONS (11)
  - Overdose [None]
  - Mental status changes [None]
  - Aggression [None]
  - Unresponsive to stimuli [None]
  - Tachycardia [None]
  - Respiratory rate increased [None]
  - Pupillary reflex impaired [None]
  - Dry mouth [None]
  - Gastrointestinal sounds abnormal [None]
  - Status epilepticus [None]
  - Hypotension [None]
